FAERS Safety Report 6264470-9 (Version None)
Quarter: 2009Q3

REPORT INFORMATION
  Report Type: 
  Country: None (occurrence: None)
  Receive Date: 20090710
  Receipt Date: 20090701
  Transmission Date: 20100115
  Serious: Yes (Hospitalization)
  Sender: FDA-Public Use
  Company Number: DE-ASTRAZENECA-2009PK01492

PATIENT
  Age: 58 Year
  Sex: Female

DRUGS (13)
  1. SEROQUEL [Suspect]
     Route: 048
     Dates: start: 20081027, end: 20081102
  2. SEROQUEL [Suspect]
     Route: 048
     Dates: start: 20081103, end: 20081121
  3. SEROQUEL [Suspect]
     Route: 048
     Dates: start: 20081122, end: 20081214
  4. SEROQUEL [Suspect]
     Route: 048
     Dates: start: 20081215, end: 20090107
  5. SEROQUEL [Suspect]
     Route: 048
     Dates: start: 20090108, end: 20090116
  6. SEROQUEL [Suspect]
     Route: 048
     Dates: start: 20090117, end: 20090216
  7. SEROQUEL [Suspect]
     Route: 048
     Dates: start: 20090217
  8. SEROQUEL [Suspect]
     Route: 048
     Dates: start: 20090105, end: 20090116
  9. VALPROATE SODIUM [Suspect]
     Route: 048
     Dates: start: 20080925, end: 20081102
  10. VALPROATE SODIUM [Suspect]
     Route: 048
     Dates: start: 20081113
  11. ABILIFY [Concomitant]
  12. FUROSEMIDE [Concomitant]
  13. MAGNESIUM SULFATE [Concomitant]

REACTIONS (2)
  - OEDEMA PERIPHERAL [None]
  - PAIN IN EXTREMITY [None]
